FAERS Safety Report 16712850 (Version 3)
Quarter: 2019Q4

REPORT INFORMATION
  Report Type: Spontaneous
  Country: PL (occurrence: PL)
  Receive Date: 20190817
  Receipt Date: 20191003
  Transmission Date: 20200122
  Serious: Yes (Other)
  Sender: FDA-Public Use
  Company Number: PL-AUROBINDO-AUR-APL-2019-052180

PATIENT
  Age: 42 Year
  Sex: Male

DRUGS (5)
  1. AMLODIPINE [Suspect]
     Active Substance: AMLODIPINE BESYLATE
     Indication: HYPERTENSION
     Dosage: 5 MILLIGRAM, ONCE A DAY (IN EVENING)
     Route: 048
  2. TORASEMIDE [Suspect]
     Active Substance: TORSEMIDE
     Dosage: UNK
     Route: 065
  3. RAMIPRIL. [Suspect]
     Active Substance: RAMIPRIL
     Indication: HYPERTENSION
     Dosage: 5 MILLIGRAM, ONCE A DAY (IN THE MORNING)
     Route: 048
  4. POTASSIUM [Suspect]
     Active Substance: POTASSIUM
     Indication: MINERAL SUPPLEMENTATION
     Dosage: UNK, IN THE MORNING
     Route: 065
  5. TORASEMIDE [Suspect]
     Active Substance: TORSEMIDE
     Indication: HYPERTENSION
     Dosage: 5 MILLIGRAM, ONCE A DAY (IN THE MORNING)
     Route: 048

REACTIONS (5)
  - Sinus tachycardia [Unknown]
  - Drug ineffective [Unknown]
  - Palpitations [Unknown]
  - Therapeutic product effect incomplete [Unknown]
  - Blood pressure increased [Recovering/Resolving]
